FAERS Safety Report 6025343-X (Version None)
Quarter: 2008Q4

REPORT INFORMATION
  Report Type: 
  Country: None (occurrence: None)
  Receive Date: 20081231
  Receipt Date: 20081226
  Transmission Date: 20090506
  Serious: Yes (Hospitalization, Other)
  Sender: FDA-Public Use
  Company Number: US-MERCK-0811USA03731

PATIENT
  Age: 53 Year
  Sex: Male
  Weight: 78 kg

DRUGS (11)
  1. JANUVIA [Suspect]
     Indication: DIABETES MELLITUS
     Route: 048
     Dates: start: 20080909, end: 20081111
  2. JANUVIA [Suspect]
     Route: 048
     Dates: start: 20081118
  3. METFORMIN [Concomitant]
     Indication: DIABETES MELLITUS
     Route: 065
  4. ACTOS [Concomitant]
     Indication: DIABETES MELLITUS
     Route: 065
  5. LIPITOR [Concomitant]
     Route: 065
  6. ASPIRIN [Concomitant]
     Route: 065
  7. CLONAZEPAM [Concomitant]
     Route: 065
  8. REMERON [Concomitant]
     Route: 065
  9. VITAMINS (UNSPECIFIED) [Concomitant]
     Route: 065
  10. IBUPROFEN [Concomitant]
     Route: 065
  11. FAMVIR [Concomitant]
     Indication: HERPES SIMPLEX
     Route: 065

REACTIONS (10)
  - ANGIOEDEMA [None]
  - ASTHENIA [None]
  - CHILLS [None]
  - CONJUNCTIVITIS ALLERGIC [None]
  - EYE PAIN [None]
  - EYE SWELLING [None]
  - HEMICEPHALALGIA [None]
  - PAIN OF SKIN [None]
  - PYREXIA [None]
  - VISION BLURRED [None]
